FAERS Safety Report 8797829 (Version 2)
Quarter: 2013Q1

REPORT INFORMATION
  Report Type: Spontaneous
  Country: US (occurrence: US)
  Receive Date: 20120919
  Receipt Date: 20130108
  Transmission Date: 20140127
  Serious: No
  Sender: FDA-Public Use
  Company Number: US-ASTRAZENECA-2011SE53400

PATIENT
  Age: 73 Year
  Sex: Female

DRUGS (4)
  1. NEXIUM [Suspect]
     Route: 048
  2. PLAVIX [Interacting]
     Route: 065
  3. TOPROL XL [Suspect]
     Route: 048
  4. BRILINTA [Suspect]
     Route: 048

REACTIONS (2)
  - Drug interaction [Unknown]
  - Cardiac disorder [Unknown]
